FAERS Safety Report 25991030 (Version 1)
Quarter: 2025Q4

REPORT INFORMATION
  Report Type: Spontaneous
  Country: AU (occurrence: AU)
  Receive Date: 20251103
  Receipt Date: 20251103
  Transmission Date: 20260117
  Serious: Yes (Hospitalization)
  Sender: SANDOZ
  Company Number: None

PATIENT
  Age: 62 Year
  Sex: Female

DRUGS (5)
  1. FLUCLOXACILLIN SODIUM [Suspect]
     Active Substance: FLUCLOXACILLIN SODIUM
     Dosage: 1 G  INTERVAL: 8 HOUR
     Route: 042
  2. FLUCLOXACILLIN SODIUM [Suspect]
     Active Substance: FLUCLOXACILLIN SODIUM
     Indication: Staphylococcal infection
     Dosage: 1 G INTERVAL: 4 DAY
     Route: 048
  3. FLUCLOXACILLIN SODIUM [Suspect]
     Active Substance: FLUCLOXACILLIN SODIUM
     Dosage: 2 G  INTERVAL: 4 HOUR
     Route: 042
  4. TACROLIMUS [Suspect]
     Active Substance: TACROLIMUS
     Indication: Staphylococcal infection
     Dosage: UNK
     Route: 042
  5. VORICONAZOLE [Suspect]
     Active Substance: VORICONAZOLE
     Indication: Cardiac valve vegetation
     Dosage: UNK
     Route: 042

REACTIONS (3)
  - Drug level above therapeutic [Unknown]
  - Drug level below therapeutic [Unknown]
  - Drug interaction [Unknown]
